FAERS Safety Report 24931879 (Version 1)
Quarter: 2025Q1

REPORT INFORMATION
  Report Type: Spontaneous
  Country: CH (occurrence: CH)
  Receive Date: 20250205
  Receipt Date: 20250205
  Transmission Date: 20250409
  Serious: No
  Sender: EXELIXIS
  Company Number: CH-IPSEN Group, Research and Development-2024-12577

PATIENT
  Age: 42 Year
  Sex: Female

DRUGS (5)
  1. CABOMETYX [Suspect]
     Active Substance: CABOZANTINIB S-MALATE
     Indication: Ewing^s sarcoma metastatic
     Dosage: 60 MG, QD
     Route: 048
     Dates: start: 20240619, end: 20240626
  2. CABOMETYX [Suspect]
     Active Substance: CABOZANTINIB S-MALATE
     Indication: Off label use
  3. TRIUMEQ [Concomitant]
     Active Substance: ABACAVIR SULFATE\DOLUTEGRAVIR SODIUM\LAMIVUDINE
  4. POTASSIUM CHLORIDE [Concomitant]
     Active Substance: POTASSIUM CHLORIDE
  5. DOXYCYCLINE [Concomitant]
     Active Substance: DOXYCYCLINE
     Dates: start: 20240626, end: 20240626

REACTIONS (8)
  - General physical health deterioration [Unknown]
  - Decreased appetite [Unknown]
  - Weight decreased [Unknown]
  - Feeling cold [Unknown]
  - Dyspnoea [Unknown]
  - Fatigue [Unknown]
  - Nausea [Unknown]
  - Off label use [Unknown]

NARRATIVE: CASE EVENT DATE: 20240619
